FAERS Safety Report 7134563-2 (Version None)
Quarter: 2010Q4

REPORT INFORMATION
  Report Type: 
  Country: None (occurrence: None)
  Receive Date: 20101129
  Receipt Date: 20101129
  Transmission Date: 20110411
  Serious: Yes (Life-Threatening, Disabling, Other)
  Sender: FDA-Public Use
  Company Number: None

PATIENT
  Sex: Male
  Weight: 88.905 kg

DRUGS (1)
  1. NASONEX [Suspect]
     Indication: NASAL POLYPS
     Dosage: 50MCG 1/DAY NASAL
     Route: 045

REACTIONS (6)
  - COUGH [None]
  - HEADACHE [None]
  - MUSCULOSKELETAL PAIN [None]
  - SINUSITIS [None]
  - VIRAL INFECTION [None]
  - VOMITING [None]
